FAERS Safety Report 9034485 (Version 3)
Quarter: 2013Q2

REPORT INFORMATION
  Report Type: Spontaneous
  Country: US (occurrence: None)
  Receive Date: 20130115
  Receipt Date: 20130501
  Transmission Date: 20140414
  Serious: Yes (Hospitalization, Other)
  Sender: FDA-Public Use
  Company Number: JPI-P-028910

PATIENT
  Age: 43 Year
  Sex: Female
  Weight: 91.63 kg

DRUGS (5)
  1. XYREM (500 MILLIGRAM/MILLILITERS, SOLUTION) (SODIUM OXYBATE) [Suspect]
     Indication: CATAPLEXY
     Dosage: 4.5 GM (2.25 GM, 2 IN 1 D)
     Route: 048
     Dates: start: 20111024
  2. DULOXETINE HYDCROCHLORIDE [Concomitant]
  3. PANTOPRAZOLE [Concomitant]
  4. LOSARTAN [Concomitant]
  5. CARVEDILOL [Concomitant]

REACTIONS (10)
  - Intracranial aneurysm [None]
  - Carotid artery aneurysm [None]
  - Fibromuscular dysplasia [None]
  - Cerebrovascular accident [None]
  - Aphasia [None]
  - Cognitive disorder [None]
  - Insomnia [None]
  - Fatigue [None]
  - Memory impairment [None]
  - Amnesia [None]
